FAERS Safety Report 25507732 (Version 1)
Quarter: 2025Q3

REPORT INFORMATION
  Report Type: Spontaneous
  Country: US (occurrence: US)
  Receive Date: 20250703
  Receipt Date: 20250703
  Transmission Date: 20251020
  Serious: No
  Sender: Unknown Manufacturer
  Company Number: US-MTPC-MTPA2025-0011954

PATIENT
  Sex: Female

DRUGS (4)
  1. RADICAVA ORS [Suspect]
     Active Substance: EDARAVONE
     Indication: Product used for unknown indication
     Route: 048
  2. RADICAVA ORS [Suspect]
     Active Substance: EDARAVONE
     Indication: Product used for unknown indication
     Route: 048
  3. RADICAVA ORS [Suspect]
     Active Substance: EDARAVONE
  4. RADICAVA ORS [Suspect]
     Active Substance: EDARAVONE

REACTIONS (1)
  - Fluid intake reduced [Unknown]
